FAERS Safety Report 9749507 (Version 1)
Quarter: 2013Q3

REPORT INFORMATION
  Report Type: Spontaneous
  Country: GB (occurrence: None)
  Receive Date: 20130912
  Receipt Date: 20130912
  Transmission Date: 20140515
  Serious: Yes (Life-Threatening, Hospitalization, Other)
  Sender: FDA-Public Use
  Company Number: AUR-APL-2013-07438

PATIENT
  Age: 59 Year
  Sex: Female

DRUGS (6)
  1. AMOXICILLIN [Suspect]
     Indication: LOWER RESPIRATORY TRACT INFECTION
     Dosage: 750 MG (250 MG, 3 IN 1 D), ORAL
     Route: 048
     Dates: start: 201209
  2. DIAZEPAM (DIAZEPAM) [Concomitant]
  3. LEVOTHYROXINE (LEVOTHYROXINE) [Concomitant]
  4. SERTRALINE (SERTRALINE) [Concomitant]
  5. SIMVASTATIN (SIMVASTATIN) [Concomitant]
  6. WARFARIN (WARFARIN) [Concomitant]

REACTIONS (2)
  - Pneumonia [None]
  - Treatment failure [None]
